FAERS Safety Report 13390045 (Version 2)
Quarter: 2017Q2

REPORT INFORMATION
  Report Type: Spontaneous
  Country: US (occurrence: US)
  Receive Date: 20170331
  Receipt Date: 20170526
  Transmission Date: 20170830
  Serious: No
  Sender: FDA-Public Use
  Company Number: US-009507513-1703USA008949

PATIENT
  Age: 60 Year
  Sex: Male

DRUGS (3)
  1. FLOMAX [Concomitant]
     Active Substance: TAMSULOSIN HYDROCHLORIDE
  2. KEYTRUDA [Suspect]
     Active Substance: PEMBROLIZUMAB
     Indication: B-CELL LYMPHOMA
     Dosage: UNK
     Route: 042
     Dates: start: 201608
  3. BUPROPION HYDROCHLORIDE. [Concomitant]
     Active Substance: BUPROPION HYDROCHLORIDE
     Dosage: 300 MG, PER DAY

REACTIONS (11)
  - Erectile dysfunction [Unknown]
  - Poor quality sleep [Unknown]
  - Malaise [Unknown]
  - Gastric disorder [Unknown]
  - Product use issue [Unknown]
  - Personality change [Unknown]
  - Depression [Unknown]
  - Impatience [Unknown]
  - Dyschezia [Unknown]
  - Adverse event [Not Recovered/Not Resolved]
  - Tooth loss [Unknown]
